FAERS Safety Report 22204643 (Version 2)
Quarter: 2024Q4

REPORT INFORMATION
  Report Type: Spontaneous
  Country: MY (occurrence: MY)
  Receive Date: 20230413
  Receipt Date: 20241229
  Transmission Date: 20250114
  Serious: Yes (Death, Other)
  Sender: AMGEN
  Company Number: MY-AMGEN-MYSSP2023060762

PATIENT

DRUGS (1)
  1. CINACALCET HYDROCHLORIDE [Suspect]
     Active Substance: CINACALCET HYDROCHLORIDE
     Indication: Calciphylaxis
     Dosage: UNK
     Route: 065

REACTIONS (8)
  - Death [Fatal]
  - Palliative care [Fatal]
  - Ill-defined disorder [Fatal]
  - Infection [Fatal]
  - Sepsis [Fatal]
  - Cardiovascular disorder [Fatal]
  - Calciphylaxis [Unknown]
  - Off label use [Unknown]
